FAERS Safety Report 6816981-2 (Version None)
Quarter: 2010Q3

REPORT INFORMATION
  Report Type: 
  Country: None (occurrence: None)
  Receive Date: 20100706
  Receipt Date: 20100623
  Transmission Date: 20110219
  Serious: Yes (Hospitalization, Other)
  Sender: FDA-Public Use
  Company Number: PHHY2010JP41370

PATIENT

DRUGS (4)
  1. ICL670A ICL+DISTAB [Suspect]
     Indication: IRON OVERLOAD
     Dosage: 1000 MG, DAILY
     Route: 048
     Dates: start: 20081030
  2. GASTER [Concomitant]
     Indication: GASTRITIS
     Dosage: 20 MG, UNK
     Route: 048
     Dates: start: 20080111
  3. SELBEX [Concomitant]
     Indication: GASTRITIS
     Dosage: 150 MG, UNK
     Dates: start: 20051205
  4. RED BLOOD CELLS [Concomitant]
     Dosage: 2 UNITS EVERY 4 WEEKS
     Dates: start: 20081113, end: 20091016

REACTIONS (8)
  - ALANINE AMINOTRANSFERASE INCREASED [None]
  - ASPARTATE AMINOTRANSFERASE INCREASED [None]
  - BLOOD ALKALINE PHOSPHATASE INCREASED [None]
  - CONSTIPATION [None]
  - EOSINOPHIL COUNT DECREASED [None]
  - PYELONEPHRITIS [None]
  - WHITE BLOOD CELL COUNT DECREASED [None]
  - WHITE BLOOD CELL COUNT INCREASED [None]
